FAERS Safety Report 7746137-0 (Version None)
Quarter: 2011Q3

REPORT INFORMATION
  Report Type: 
  Country: None (occurrence: None)
  Receive Date: 20110913
  Receipt Date: 20110831
  Transmission Date: 20111222
  Serious: Yes (Hospitalization, Other)
  Sender: FDA-Public Use
  Company Number: US-ELI_LILLY_AND_COMPANY-US201104000297

PATIENT
  Sex: Female

DRUGS (24)
  1. ASPIRIN [Concomitant]
     Dosage: 81 MG, UNK
  2. XOPENEX [Concomitant]
  3. PREDNISONE [Concomitant]
  4. BUSPIRONE HCL [Concomitant]
  5. VITAMIN B-12 [Concomitant]
  6. IMDUR [Concomitant]
  7. FORTEO [Suspect]
     Indication: OSTEOPOROSIS
     Dosage: 20 UG, QD
     Dates: start: 20110308
  8. FORTEO [Suspect]
     Dosage: 20 UG, QD
  9. NOVOLIN R [Concomitant]
  10. FORTEO [Suspect]
     Dosage: 20 UG, QD
     Dates: start: 20110519
  11. TRICOR [Concomitant]
  12. CARVEDILOL [Concomitant]
  13. LEVEMIR [Concomitant]
  14. FORTEO [Suspect]
     Dosage: 20 UG, QD
  15. ULTRAM [Concomitant]
  16. ALDACTONE [Concomitant]
  17. ZANTAC [Concomitant]
  18. CRESTOR [Concomitant]
  19. FORTEO [Suspect]
     Dosage: 20 UG, QD
  20. CORDARONE [Concomitant]
  21. RAMIPRIL [Concomitant]
  22. METRONIDAZOLE [Concomitant]
  23. MEGESTROL ACETATE [Concomitant]
     Indication: DECREASED APPETITE
  24. COUMADIN [Concomitant]

REACTIONS (19)
  - INFECTION [None]
  - ELECTROLYTE IMBALANCE [None]
  - ABASIA [None]
  - SKIN FRAGILITY [None]
  - URINARY TRACT INFECTION [None]
  - BLOOD PRESSURE DECREASED [None]
  - HYPOPHAGIA [None]
  - VOMITING [None]
  - MOBILITY DECREASED [None]
  - DEHYDRATION [None]
  - DYSPNOEA [None]
  - MEDICAL DEVICE IMPLANTATION [None]
  - ILL-DEFINED DISORDER [None]
  - PYREXIA [None]
  - DRUG DOSE OMISSION [None]
  - CHILLS [None]
  - ASTHENIA [None]
  - DEVICE RELATED INFECTION [None]
  - PULMONARY OEDEMA [None]
